FAERS Safety Report 14538003 (Version 5)
Quarter: 2022Q3

REPORT INFORMATION
  Report Type: Report from Study
  Country: JP (occurrence: JP)
  Receive Date: 20180216
  Receipt Date: 20220712
  Transmission Date: 20221026
  Serious: Yes (Hospitalization)
  Sender: FDA-Public Use
  Company Number: JP-ABBVIE-18K-087-2249630-00

PATIENT
  Age: 69 Year
  Sex: Female

DRUGS (3)
  1. CARBIDOPA\LEVODOPA [Suspect]
     Active Substance: CARBIDOPA\LEVODOPA
     Indication: Product used for unknown indication
     Dosage: MD: 8 ML, CD: 3 ML/HR X 15 HR
     Route: 050
     Dates: start: 20170328, end: 20170605
  2. CARBIDOPA\LEVODOPA [Suspect]
     Active Substance: CARBIDOPA\LEVODOPA
     Dosage: MD: 8 ML, CD: 3 ML/HOUR 15 HOURS, ED: 0 ML/UNIT
     Route: 050
     Dates: start: 20170608, end: 20180131
  3. LEVODOPA + CARBIDOPA + ENTACAPONA STADA [Concomitant]
     Indication: Product used for unknown indication
     Route: 048
     Dates: start: 20170605, end: 20170608

REACTIONS (3)
  - Gastric ulcer [Recovering/Resolving]
  - Gastrointestinal haemorrhage [Recovered/Resolved]
  - Device occlusion [Recovered/Resolved]

NARRATIVE: CASE EVENT DATE: 20170605
